FAERS Safety Report 19623200 (Version 1)
Quarter: 2021Q3

REPORT INFORMATION
  Report Type: Spontaneous
  Country: US (occurrence: US)
  Receive Date: 20210729
  Receipt Date: 20210729
  Transmission Date: 20211014
  Serious: Yes (Other)
  Sender: FDA-Public Use
  Company Number: US-BAUSCH-BL-2021-025255

PATIENT
  Age: 78 Year
  Sex: Female

DRUGS (2)
  1. LATANAPROST [Suspect]
     Active Substance: LATANOPROST
     Indication: OPEN ANGLE GLAUCOMA
     Dosage: EVERY NIGHT, IN BOTH THE EYES
     Route: 061
  2. SIMBRINZA [Suspect]
     Active Substance: BRIMONIDINE TARTRATE\BRINZOLAMIDE
     Indication: OPEN ANGLE GLAUCOMA
     Dosage: (BRIMONIDINE 0.1%/BRINZOLAMIDE 0.1%) IN BOTH THE EYES
     Route: 061

REACTIONS (1)
  - Angle closure glaucoma [Recovered/Resolved]
